FAERS Safety Report 20199369 (Version 1)
Quarter: 2021Q4

REPORT INFORMATION
  Report Type: Spontaneous
  Country: US (occurrence: US)
  Receive Date: 20211217
  Receipt Date: 20211217
  Transmission Date: 20220303
  Serious: No
  Sender: FDA-Public Use
  Company Number: US-PACIRA-2020000554

PATIENT
  Age: 42 Year
  Sex: Female
  Weight: 120 kg

DRUGS (2)
  1. EXPAREL [Suspect]
     Active Substance: BUPIVACAINE
     Dosage: 10 ML (133MG)
     Route: 050
     Dates: start: 20201211, end: 20201211
  2. BUPIVACAINE [Concomitant]
     Active Substance: BUPIVACAINE
     Dosage: 15ML
     Dates: start: 20201211, end: 20201211

REACTIONS (3)
  - Feeling cold [Recovered/Resolved]
  - Motor dysfunction [Recovered/Resolved]
  - Hypoaesthesia [Not Recovered/Not Resolved]

NARRATIVE: CASE EVENT DATE: 20201211
